FAERS Safety Report 4887684-9 (Version None)
Quarter: 2006Q1

REPORT INFORMATION
  Report Type: 
  Country: None (occurrence: None)
  Receive Date: 20060119
  Receipt Date: 20060119
  Transmission Date: 20060701
  Serious: Yes (Hospitalization)
  Sender: FDA-Public Use
  Company Number: None

PATIENT
  Age: 54 Year
  Sex: Male
  Weight: 58.9 kg

DRUGS (1)
  1. PHENYTOIN [Suspect]
     Indication: CONVULSION
     Dosage: 300 MG BY MOUTH AT BEDTIME
     Route: 048
     Dates: start: 20051029

REACTIONS (5)
  - DIZZINESS [None]
  - DRUG ABUSER [None]
  - DRUG DOSE OMISSION [None]
  - RENAL FAILURE ACUTE [None]
  - TREMOR [None]
